FAERS Safety Report 5893817-8 (Version None)
Quarter: 2008Q3

REPORT INFORMATION
  Report Type: 
  Country: None (occurrence: None)
  Receive Date: 20080923
  Receipt Date: 20071023
  Transmission Date: 20090109
  Serious: No
  Sender: FDA-Public Use
  Company Number: US-ASTRAZENECA-2007UW24699

PATIENT
  Age: 45 Year
  Sex: Female

DRUGS (2)
  1. SEROQUEL [Suspect]
     Indication: MIGRAINE PROPHYLAXIS
     Route: 048
  2. ANTICONVULSANT [Concomitant]
     Indication: MIGRAINE PROPHYLAXIS

REACTIONS (1)
  - WEIGHT INCREASED [None]
